FAERS Safety Report 7881254-6 (Version None)
Quarter: 2011Q4

REPORT INFORMATION
  Report Type: 
  Country: None (occurrence: None)
  Receive Date: 20111101
  Receipt Date: 20110608
  Transmission Date: 20120403
  Serious: No
  Sender: FDA-Public Use
  Company Number: US-AMGEN-USASP2011029615

PATIENT
  Sex: Male

DRUGS (1)
  1. ENBREL [Suspect]
     Indication: PSORIASIS
     Dosage: UNK
     Dates: start: 20100201

REACTIONS (5)
  - DRY MOUTH [None]
  - INJECTION SITE SWELLING [None]
  - INJECTION SITE WARMTH [None]
  - INJECTION SITE ANAESTHESIA [None]
  - INJECTION SITE REACTION [None]
